FAERS Safety Report 5162482-X (Version None)
Quarter: 2006Q4

REPORT INFORMATION
  Report Type: 
  Country: None (occurrence: None)
  Receive Date: 20061127
  Receipt Date: 20061127
  Transmission Date: 20070319
  Serious: Yes (Life-Threatening)
  Sender: FDA-Public Use
  Company Number: None

PATIENT
  Age: 62 Year
  Sex: Female
  Weight: 167 kg

DRUGS (2)
  1. ZYVOX [Suspect]
     Indication: INFECTION
     Dosage: 600 MG Q12HOURS IV
     Route: 042
     Dates: start: 20060801, end: 20060809
  2. HEPARIN [Suspect]
     Dosage: 300 UNIT Q8HOURS IV
     Route: 042
     Dates: start: 20060803, end: 20060814

REACTIONS (1)
  - THROMBOCYTOPENIA [None]
